FAERS Safety Report 23036320 (Version 2)
Quarter: 2023Q4

REPORT INFORMATION
  Report Type: Report from Study
  Country: US (occurrence: US)
  Receive Date: 20231006
  Receipt Date: 20231220
  Transmission Date: 20240109
  Serious: No
  Sender: FDA-Public Use
  Company Number: US-ABBVIE-5433936

PATIENT
  Sex: Female
  Weight: 51 kg

DRUGS (7)
  1. SKYRIZI [Suspect]
     Active Substance: RISANKIZUMAB-RZAA
     Indication: Crohn^s disease
     Dosage: FREQUENCY TEXT: EVERY 2 MONTHS
     Route: 058
     Dates: start: 20230227
  2. SKYRIZI [Suspect]
     Active Substance: RISANKIZUMAB-RZAA
     Dosage: FREQUENCY TEXT: EVERY 2 MONTHS, LAST ADMIN DATE: 2023
     Route: 058
     Dates: start: 20230102
  3. PROSTATIN [Concomitant]
     Active Substance: ARCTOSTAPHYLOS UVA-URSI LEAF\URTICA DIOICA
     Indication: Product used for unknown indication
  4. CARBAMAZEPINE [Concomitant]
     Active Substance: CARBAMAZEPINE
     Indication: Trigeminal neuralgia
  5. GABAPENTIN [Concomitant]
     Active Substance: GABAPENTIN
     Indication: Product used for unknown indication
  6. PROZAC [Concomitant]
     Active Substance: FLUOXETINE HYDROCHLORIDE
     Indication: Product used for unknown indication
  7. IMODIUM [Concomitant]
     Active Substance: LOPERAMIDE HYDROCHLORIDE
     Indication: Product used for unknown indication

REACTIONS (1)
  - Dehydration [Unknown]

NARRATIVE: CASE EVENT DATE: 20230101
